FAERS Safety Report 25165818 (Version 1)
Quarter: 2025Q2

REPORT INFORMATION
  Report Type: Spontaneous
  Country: US (occurrence: US)
  Receive Date: 20250407
  Receipt Date: 20250407
  Transmission Date: 20250717
  Serious: No
  Sender: CSL BEHRING
  Company Number: US-BEH-2025200913

PATIENT
  Age: 58 Year
  Sex: Male

DRUGS (1)
  1. HIZENTRA [Suspect]
     Active Substance: HUMAN IMMUNOGLOBULIN G
     Indication: Blood immunoglobulin G decreased
     Dosage: 8 G, QOW
     Route: 058

REACTIONS (2)
  - Infusion site erythema [Unknown]
  - Infusion site infection [Unknown]

NARRATIVE: CASE EVENT DATE: 20250324
